FAERS Safety Report 8198171-7 (Version None)
Quarter: 2012Q1

REPORT INFORMATION
  Report Type: 
  Country: None (occurrence: None)
  Receive Date: 20120309
  Receipt Date: 20111202
  Transmission Date: 20120608
  Serious: No
  Sender: FDA-Public Use
  Company Number: US-AMGEN-USASP2011064338

PATIENT
  Age: 73 Year
  Sex: Female

DRUGS (8)
  1. ALLEGRA [Concomitant]
     Dosage: 3 MG, QD
  2. QVAR 40 [Concomitant]
  3. DOXYCYCLINE [Concomitant]
  4. SINGULAIR [Concomitant]
  5. PROLIA [Suspect]
     Indication: OSTEOPOROSIS POSTMENOPAUSAL
     Dates: start: 20110822
  6. LEVOTHYROXINE SODIUM [Concomitant]
  7. FISH OIL [Concomitant]
  8. LIPITOR [Concomitant]

REACTIONS (4)
  - BONE PAIN [None]
  - ARTHRALGIA [None]
  - JOINT RANGE OF MOTION DECREASED [None]
  - MUSCULOSKELETAL PAIN [None]
